FAERS Safety Report 9528608 (Version 1)
Quarter: 2013Q1

REPORT INFORMATION
  Report Type: Spontaneous
  Country: US (occurrence: None)
  Receive Date: 20130314
  Receipt Date: 20130314
  Transmission Date: 20140127
  Serious: No
  Sender: FDA-Public Use
  Company Number: 1211USA011534

PATIENT
  Age: 59 Year
  Sex: Female

DRUGS (3)
  1. PEGINTRON (PEGINTERFERON ALFA-2B)POWDER FOR INJECTION [Suspect]
     Indication: HEPATITIS C
     Route: 058
     Dates: start: 20120911
  2. REBETOL (RIBAVIRIN)CAPSULE [Suspect]
     Indication: HEPATITIS C
     Route: 048
     Dates: start: 20120911
  3. VICTRELIS (BOCEPREVIR)CAPSULE [Suspect]
     Indication: HEPATITIS C
     Route: 048
     Dates: start: 20121010

REACTIONS (2)
  - Anaemia [None]
  - Palpitations [None]
